FAERS Safety Report 15050190 (Version 1)
Quarter: 2018Q2

REPORT INFORMATION
  Report Type: Spontaneous
  Country: BR (occurrence: BR)
  Receive Date: 20180622
  Receipt Date: 20180622
  Transmission Date: 20180711
  Serious: Yes (Life-Threatening, Hospitalization, Other)
  Sender: FDA-Public Use
  Company Number: BR-ARALEZ PHARMACEUTICALS R+D INC.-2018-ARA-001556

PATIENT
  Sex: Female

DRUGS (5)
  1. AMLODIPINE [Concomitant]
     Active Substance: AMLODIPINE BESYLATE
     Indication: PRODUCT USED FOR UNKNOWN INDICATION
     Dosage: UNK
     Route: 048
     Dates: start: 201712
  2. METOPROLOL SUCCINATE. [Suspect]
     Active Substance: METOPROLOL SUCCINATE
     Indication: CARDIOMEGALY
     Dosage: 150 MG, BID
     Route: 048
     Dates: start: 201601
  3. NO MATCH [Concomitant]
     Active Substance: UNSPECIFIED INGREDIENT
     Indication: ANTICOAGULANT THERAPY
     Dosage: UNK
     Route: 048
  4. LASIX [Concomitant]
     Active Substance: FUROSEMIDE
     Indication: PRODUCT USED FOR UNKNOWN INDICATION
     Dosage: UNK
     Route: 048
  5. METOPROLOL SUCCINATE. [Suspect]
     Active Substance: METOPROLOL SUCCINATE
     Dosage: 50 MG, QD
     Route: 048
     Dates: start: 201601

REACTIONS (4)
  - Heart rate increased [Not Recovered/Not Resolved]
  - Product use in unapproved indication [Unknown]
  - Off label use [Not Recovered/Not Resolved]
  - Embolic stroke [Recovered/Resolved]

NARRATIVE: CASE EVENT DATE: 201601
